FAERS Safety Report 5305367-8 (Version None)
Quarter: 2007Q1

REPORT INFORMATION
  Report Type: 
  Country: None (occurrence: None)
  Receive Date: 20070201
  Receipt Date: 20061110
  Transmission Date: 20070707
  Serious: No
  Sender: FDA-Public Use
  Company Number: 2006PV025001

PATIENT
  Age: 53 Year
  Sex: Male
  Weight: 83.4619 kg

DRUGS (3)
  1. BYETTA [Suspect]
     Indication: DIABETES MELLITUS NON-INSULIN-DEPENDENT
     Dosage: 10 MCG;BID;SC, 5 MCG;BID;SC
     Route: 058
     Dates: start: 20060901, end: 20061001
  2. BYETTA [Suspect]
     Indication: DIABETES MELLITUS NON-INSULIN-DEPENDENT
     Dosage: 10 MCG;BID;SC, 5 MCG;BID;SC
     Route: 058
     Dates: start: 20061001
  3. ACTOS/MET [Concomitant]

REACTIONS (6)
  - ABDOMINAL DISTENSION [None]
  - ERUCTATION [None]
  - FEELING COLD [None]
  - FLATULENCE [None]
  - HEADACHE [None]
  - NAUSEA [None]
